FAERS Safety Report 22369942 (Version 1)
Quarter: 2023Q2

REPORT INFORMATION
  Report Type: Spontaneous
  Country: JP (occurrence: JP)
  Receive Date: 20230526
  Receipt Date: 20230526
  Transmission Date: 20230721
  Serious: Yes (Other)
  Sender: FDA-Public Use
  Company Number: JP-BRISTOL-MYERS SQUIBB COMPANY-2023-070649

PATIENT
  Age: 63 Year
  Sex: Female

DRUGS (4)
  1. ORENCIA [Suspect]
     Active Substance: ABATACEPT
     Indication: Rheumatoid arthritis
  2. ORENCIA [Suspect]
     Active Substance: ABATACEPT
  3. METHOTREXATE [Concomitant]
     Active Substance: METHOTREXATE
     Indication: Rheumatoid arthritis
     Dosage: MTX WAS TAPERED OFF IN NOVEMBER OF YEAR X-7
  4. TOCILIZUMAB [Concomitant]
     Active Substance: TOCILIZUMAB
     Indication: Rheumatoid arthritis

REACTIONS (2)
  - Palmoplantar pustulosis [Recovering/Resolving]
  - Condition aggravated [Recovering/Resolving]
